FAERS Safety Report 10398102 (Version 1)
Quarter: 2014Q1

REPORT INFORMATION
  Report Type: Spontaneous
  Country: US (occurrence: None)
  Receive Date: 20130815
  Receipt Date: 20130815
  Transmission Date: 20141002
  Serious: Yes (Hospitalization)
  Sender: FDA-Public Use
  Company Number: ADR-2012-01089

PATIENT
  Sex: Male

DRUGS (2)
  1. BACLOFEN INTRATHECAL (BACLOFEN INJECTION) [Suspect]
     Indication: CANCER PAIN
  2. BACLOFEN INTRATHECAL (BACLOFEN INJECTION) [Suspect]

REACTIONS (4)
  - Aggression [None]
  - Adverse drug reaction [None]
  - Unevaluable event [None]
  - No therapeutic response [None]
